FAERS Safety Report 9798112 (Version 2)
Quarter: 2014Q1

REPORT INFORMATION
  Report Type: Spontaneous
  Country: US (occurrence: US)
  Receive Date: 20140106
  Receipt Date: 20140106
  Transmission Date: 20141002
  Serious: Yes (Hospitalization, Other)
  Sender: FDA-Public Use
  Company Number: US-NOVOPROD-391702

PATIENT
  Age: 72 Year
  Sex: Female
  Weight: 89.8 kg

DRUGS (2)
  1. NOVOLOG MIX 70/30 FLEXPEN [Suspect]
     Indication: TYPE 1 DIABETES MELLITUS
     Dosage: UNK
     Route: 058
     Dates: start: 20111004
  2. NOVOLOG [Suspect]
     Indication: TYPE 1 DIABETES MELLITUS
     Dosage: 3 U, QD
     Route: 058
     Dates: start: 20110425, end: 20131010

REACTIONS (5)
  - Cardiac failure [Unknown]
  - Blood glucose increased [Recovered/Resolved]
  - Infection [Unknown]
  - Drug dose omission [Unknown]
  - Blood glucose increased [Unknown]
